FAERS Safety Report 8037423-8 (Version None)
Quarter: 2012Q1

REPORT INFORMATION
  Report Type: 
  Country: None (occurrence: None)
  Receive Date: 20120111
  Receipt Date: 20111125
  Transmission Date: 20120608
  Serious: Yes (Death)
  Sender: FDA-Public Use
  Company Number: JP-SANOFI-AVENTIS-F03200900118

PATIENT
  Age: 72 Year
  Sex: Male

DRUGS (26)
  1. ETOPOSIDE [Concomitant]
     Dates: start: 20080421
  2. PREDNISOLONE [Concomitant]
     Route: 048
     Dates: start: 20050301, end: 20080411
  3. DRUGS AFFECTING MINERALIZATION [Concomitant]
     Indication: MALNUTRITION
     Route: 042
     Dates: start: 20080416, end: 20080417
  4. DRUGS AFFECTING MINERALIZATION [Concomitant]
     Route: 042
     Dates: start: 20080418
  5. PREDNISOLONE [Concomitant]
     Route: 048
     Dates: start: 20080412, end: 20080420
  6. DOXORUBICIN HCL [Concomitant]
     Route: 065
     Dates: start: 20080421
  7. SOLDEM 3A [Concomitant]
     Indication: DEHYDRATION
     Route: 042
     Dates: start: 20080411, end: 20080413
  8. DRUGS FOR FUNCTIONAL GASTROINTEST. DISORDERS [Concomitant]
     Indication: DEHYDRATION
     Route: 042
     Dates: start: 20080412, end: 20080415
  9. DRUGS FOR FUNCTIONAL GASTROINTEST. DISORDERS [Concomitant]
     Route: 042
     Dates: start: 20080413, end: 20080415
  10. DEXAMETHASONE TAB [Concomitant]
     Route: 065
     Dates: start: 20080421
  11. WARFARIN SODIUM [Concomitant]
     Indication: DEEP VEIN THROMBOSIS
     Route: 048
     Dates: start: 20080404, end: 20080412
  12. PURSENNID [Concomitant]
     Indication: CONSTIPATION
     Route: 048
     Dates: start: 20080327, end: 20080412
  13. MENATETRENONE [Concomitant]
     Route: 042
     Dates: start: 20080414, end: 20080415
  14. VINCRISTINE SULFATE [Concomitant]
     Route: 065
     Dates: start: 20080412
  15. RABEPRAZOLE SODIUM [Concomitant]
     Route: 048
     Dates: start: 20080326, end: 20080412
  16. MAGNESIUM OXIDE [Concomitant]
     Indication: CONSTIPATION
     Route: 048
     Dates: start: 20080327, end: 20080412
  17. OMEPRAZOLE [Concomitant]
     Route: 042
     Dates: start: 20080412, end: 20080420
  18. MELPHALAN HYDROCHLORIDE [Concomitant]
     Route: 065
     Dates: start: 20080421
  19. FLUDARABINE PHOSPHATE [Suspect]
     Route: 048
     Dates: start: 20080410, end: 20080411
  20. KN 1A [Concomitant]
     Indication: DEHYDRATION
     Route: 042
     Dates: start: 20080414, end: 20080417
  21. GLYCEROL/GLYCINE MAX SEED OIL/PHOSPHOLIPIDS [Concomitant]
     Indication: MALNUTRITION
     Route: 042
     Dates: start: 20080418, end: 20080418
  22. METHOTREXATE [Concomitant]
     Dates: start: 20080421
  23. ANTIVIRALS, TOPICAL [Concomitant]
     Indication: HEPATITIS B
     Route: 048
     Dates: start: 20080327, end: 20080429
  24. RAMELTEON [Concomitant]
     Route: 048
     Dates: start: 20080411, end: 20080411
  25. PREDNISOLONE [Concomitant]
     Route: 065
  26. CYCLOPHOSPHAMIDE [Concomitant]
     Route: 065
     Dates: start: 20080421

REACTIONS (8)
  - PLATELET COUNT DECREASED [None]
  - HEPATIC ENZYME ABNORMAL [None]
  - HAEMATOCRIT DECREASED [None]
  - HYPONATRAEMIA [None]
  - NAUSEA [None]
  - ANAEMIA [None]
  - NON-HODGKIN'S LYMPHOMA [None]
  - C-REACTIVE PROTEIN INCREASED [None]
